FAERS Safety Report 16127260 (Version 2)
Quarter: 2019Q2

REPORT INFORMATION
  Report Type: Report from Study
  Country: US (occurrence: US)
  Receive Date: 20190328
  Receipt Date: 20190522
  Transmission Date: 20190711
  Serious: Yes (Other)
  Sender: FDA-Public Use
  Company Number: PHEH2019US013456

PATIENT
  Age: 12 Year
  Sex: Male
  Weight: 41.9 kg

DRUGS (1)
  1. PROMACTA [Suspect]
     Active Substance: ELTROMBOPAG OLAMINE
     Indication: IMMUNE THROMBOCYTOPENIC PURPURA
     Dosage: 50 MG, UNK
     Route: 048
     Dates: start: 20190218

REACTIONS (2)
  - Haemorrhage [Unknown]
  - Platelet count increased [Unknown]

NARRATIVE: CASE EVENT DATE: 20190429
